FAERS Safety Report 9503603 (Version 4)
Quarter: 2013Q3

REPORT INFORMATION
  Report Type: Spontaneous
  Country: JP (occurrence: JP)
  Receive Date: 20130906
  Receipt Date: 20130924
  Transmission Date: 20140515
  Serious: Yes (Death, Hospitalization, Other)
  Sender: FDA-Public Use
  Company Number: JP-PFIZER INC-2013257282

PATIENT
  Age: 74 Year
  Sex: Female

DRUGS (3)
  1. LYRICA [Suspect]
     Indication: NEURALGIA
     Dosage: 150 MG/DAY (75 MG TWICE DAILY)  AS NEEDED
     Route: 048
     Dates: start: 201301
  2. LIPITOR [Concomitant]
     Dosage: UNK
     Route: 048
  3. MIRTAZAPINE [Concomitant]
     Dosage: UNK
     Route: 048

REACTIONS (2)
  - Interstitial lung disease [Fatal]
  - Loss of consciousness [Unknown]
